FAERS Safety Report 10170866 (Version 1)
Quarter: 2014Q2

REPORT INFORMATION
  Report Type: Spontaneous
  Country: US (occurrence: None)
  Receive Date: 20140513
  Receipt Date: 20140513
  Transmission Date: 20141212
  Serious: Yes (Life-Threatening, Hospitalization, Disabling)
  Sender: FDA-Public Use
  Company Number: None

PATIENT
  Age: 56 Year
  Sex: Male
  Weight: 81.65 kg

DRUGS (5)
  1. CHANTIX [Suspect]
     Indication: SMOKING CESSATION THERAPY
     Route: 048
     Dates: start: 20140327, end: 20140410
  2. DICLOPENAC POTASSIUM [Concomitant]
  3. VITAMIN D3 [Concomitant]
  4. VITAMIN C [Concomitant]
  5. MULTI VITAMIN [Concomitant]

REACTIONS (2)
  - Myocardial infarction [None]
  - Hypoaesthesia [None]
